FAERS Safety Report 21001402 (Version 2)
Quarter: 2022Q3

REPORT INFORMATION
  Report Type: Spontaneous
  Country: US (occurrence: None)
  Receive Date: 20220624
  Receipt Date: 20220801
  Transmission Date: 20221026
  Serious: Yes (Hospitalization)
  Sender: FDA-Public Use
  Company Number: US-ROCHE-3117230

PATIENT
  Age: 26 Year
  Sex: Female

DRUGS (2)
  1. COTELLIC [Suspect]
     Active Substance: COBIMETINIB
     Indication: Langerhans^ cell histiocytosis
     Dosage: ONE TABLET DAILY FOR SEVEN DAYS THEN TWO TABLET DAILY FOR SEVEN DAYS THEN THREE TABLET DAILY FOR SEV
     Route: 048
     Dates: start: 20210729
  2. COTELLIC [Suspect]
     Active Substance: COBIMETINIB
     Route: 048
     Dates: start: 20220521

REACTIONS (3)
  - Off label use [Unknown]
  - Joint swelling [Recovered/Resolved]
  - Neoplasm [Recovered/Resolved]

NARRATIVE: CASE EVENT DATE: 20210729
